FAERS Safety Report 14720241 (Version 2)
Quarter: 2018Q2

REPORT INFORMATION
  Report Type: Spontaneous
  Country: DE (occurrence: DE)
  Receive Date: 20180405
  Receipt Date: 20180518
  Transmission Date: 20180711
  Serious: Yes (Hospitalization)
  Sender: FDA-Public Use
  Company Number: DE-MYLANLABS-2018M1020802

PATIENT
  Age: 5 Year
  Sex: Male
  Weight: 34 kg

DRUGS (13)
  1. TOPIRAMAT [Suspect]
     Active Substance: TOPIRAMATE
     Indication: EPILEPSY
     Dosage: DAILY DOSE: 240 MG MILLIGRAM(S) EVERY DAY
     Route: 048
  2. HYDROCORTISON [Concomitant]
     Active Substance: HYDROCORTISONE
     Indication: PRODUCT USED FOR UNKNOWN INDICATION
     Dosage: 10 MG, QD DOSAGE FORM: UNSPECIFIED, 5-2.5-2.5
     Route: 065
  3. SALBUTAMOL [Suspect]
     Active Substance: ALBUTEROL
     Indication: EPILEPSY
     Dosage: 4 DF, Q2D DOSAGE FORM: UNSPECIFIED
     Route: 065
  4. VALPROATE [Suspect]
     Active Substance: VALPROIC ACID
     Indication: EPILEPSY
     Dosage: 1075 MG, QD
     Route: 048
  5. VALPROATE [Suspect]
     Active Substance: VALPROIC ACID
     Dosage: 825 UNK, UNK
     Route: 048
  6. CLOBAZAM [Suspect]
     Active Substance: CLOBAZAM
     Indication: EPILEPSY
     Dosage: 11 MG ,QD DOSAGE FORM: UNSPECIFIED, 3-0-8
     Route: 048
  7. CLOBAZAM [Suspect]
     Active Substance: CLOBAZAM
     Dosage: 9 MG, QD DOSAGE FORM: UNSPECIFIED
     Route: 048
  8. CIRCADIN [Concomitant]
     Active Substance: MELATONIN
     Indication: PRODUCT USED FOR UNKNOWN INDICATION
     Dosage: 6 MG, QD DOSAGE FORM: UNSPECIFIED
     Route: 065
  9. VALPROAT [Suspect]
     Active Substance: VALPROATE SODIUM
     Indication: EPILEPSY
     Dosage: 825 MG, QD
     Route: 048
  10. CLOBAZAM [Suspect]
     Active Substance: CLOBAZAM
     Dosage: 7 MG, QD DOSAGE FORM: UNSPECIFIED
     Route: 048
  11. L-THYROXIN [Concomitant]
     Active Substance: LEVOTHYROXINE SODIUM
     Indication: PRODUCT USED FOR UNKNOWN INDICATION
     Dosage: 50 ?G, QD,DOSAGE FORM: UNSPECIFIED
     Route: 065
  12. SULTIAME [Suspect]
     Active Substance: SULTHIAME
     Indication: EPILEPSY
     Dosage: 200 MG, QD DOSAGE FORM: UNSPECIFIED
     Route: 048
  13. TOPIRAMAT [Suspect]
     Active Substance: TOPIRAMATE
     Dosage: 120 MG, QD
     Route: 048

REACTIONS (4)
  - Drug intolerance [Unknown]
  - Disturbance in attention [Recovered/Resolved]
  - Epilepsy [Recovered/Resolved]
  - Bronchitis [Recovering/Resolving]

NARRATIVE: CASE EVENT DATE: 20160703
